FAERS Safety Report 8113455-6 (Version None)
Quarter: 2012Q1

REPORT INFORMATION
  Report Type: 
  Country: None (occurrence: None)
  Receive Date: 20120203
  Receipt Date: 20111117
  Transmission Date: 20120608
  Serious: Yes (Death, Hospitalization)
  Sender: FDA-Public Use
  Company Number: ES-GLAXOSMITHKLINE-B0764765A

PATIENT
  Sex: Male

DRUGS (6)
  1. OFATUMUMAB [Suspect]
     Indication: CHRONIC LYMPHOCYTIC LEUKAEMIA
     Route: 042
     Dates: start: 20111019, end: 20111209
  2. ACYCLOVIR [Concomitant]
     Indication: ANTIVIRAL PROPHYLAXIS
     Dosage: 800MG PER DAY
     Route: 048
  3. POLYGAM S/D [Concomitant]
     Indication: HYPOGAMMAGLOBULINAEMIA
     Route: 042
     Dates: start: 20111128, end: 20111128
  4. DARBOPOETIN ALFA [Concomitant]
     Indication: ANAEMIA
     Route: 058
     Dates: start: 20111201, end: 20111201
  5. FILGRASTIM [Concomitant]
     Indication: NEUTROPENIA
     Route: 058
     Dates: start: 20111118, end: 20111128
  6. ZOMETA [Concomitant]
     Indication: HYPERCALCAEMIA
     Route: 042
     Dates: start: 20111202, end: 20111202

REACTIONS (6)
  - BACK PAIN [None]
  - RESPIRATORY TRACT INFECTION [None]
  - DISEASE PROGRESSION [None]
  - NEUTROPENIA [None]
  - PSEUDOMONAS INFECTION [None]
  - COUGH [None]
